FAERS Safety Report 7551198-8 (Version None)
Quarter: 2011Q2

REPORT INFORMATION
  Report Type: 
  Country: None (occurrence: None)
  Receive Date: 20110616
  Receipt Date: 20110603
  Transmission Date: 20111010
  Serious: Yes (Other)
  Sender: FDA-Public Use
  Company Number: PHHY2011US49583

PATIENT
  Sex: Male
  Weight: 81.633 kg

DRUGS (1)
  1. GLEEVEC [Suspect]
     Dosage: 400 MG, QD
     Route: 048
     Dates: start: 20060601

REACTIONS (4)
  - PALPITATIONS [None]
  - AMNESIA [None]
  - MUSCLE SPASMS [None]
  - NEPHROLITHIASIS [None]
